FAERS Safety Report 6190018-3 (Version None)
Quarter: 2009Q2

REPORT INFORMATION
  Report Type: 
  Country: None (occurrence: None)
  Receive Date: 20090512
  Receipt Date: 20090512
  Transmission Date: 20091009
  Serious: Yes (Life-Threatening)
  Sender: FDA-Public Use
  Company Number: None

PATIENT
  Sex: Female
  Weight: 162 kg

DRUGS (2)
  1. HEPARIN SODIUM 5,000 UNITS IN DEXTROSE 5% [Suspect]
     Indication: ACUTE MYOCARDIAL INFARCTION
     Dosage: VARIOUS, ACCORDING TO LABS CONTINUOUS IV
     Route: 042
     Dates: start: 20090507, end: 20090508
  2. HEPARIN SODIUM 5,000 UNITS IN DEXTROSE 5% [Suspect]

REACTIONS (1)
  - HAEMORRHAGE INTRACRANIAL [None]
